FAERS Safety Report 8331214 (Version 29)
Quarter: 2015Q2

REPORT INFORMATION
  Report Type: Report from Study
  Country: DE (occurrence: DE)
  Receive Date: 20120111
  Receipt Date: 20150513
  Transmission Date: 20150821
  Serious: Yes (Death, Life-Threatening, Hospitalization)
  Sender: FDA-Public Use
  Company Number: DE-ROCHE-1028829

PATIENT
  Age: 67 Year
  Sex: Female
  Weight: 69 kg

DRUGS (17)
  1. VEMURAFENIB [Suspect]
     Active Substance: VEMURAFENIB
     Indication: MALIGNANT MELANOMA
     Dosage: DOSE REDUCED, TEMPORARILY INTERRUPTED
     Route: 048
     Dates: start: 20111021
  2. DUOTRAV [Concomitant]
     Active Substance: TIMOLOL\TRAVOPROST
     Dosage: 1 DROP DAILY
     Route: 065
     Dates: start: 2003
  3. ECURAL [Concomitant]
     Active Substance: MOMETASONE
     Dosage: ECURAL OINTMENT, TOTAL DAILY DOSE: 1 APPLICATION
     Route: 065
     Dates: start: 20111209
  4. SIMVASTATIN. [Concomitant]
     Active Substance: SIMVASTATIN
     Route: 065
     Dates: start: 2000
  5. IPILIMUMAB [Concomitant]
     Active Substance: IPILIMUMAB
  6. ADVANTAN OINTMENT [Concomitant]
     Dosage: ONE APPLICATION
     Route: 065
     Dates: start: 20111213
  7. MOBILAT (GERMANY) [Concomitant]
     Dosage: TOTAL DAILY DOSE: AS REQUIRED
     Route: 065
     Dates: start: 20111213, end: 20120105
  8. ADVANTAN OINTMENT [Concomitant]
     Dosage: 1 APPLICATION
     Route: 065
     Dates: start: 20111213
  9. RAMIPRIL. [Concomitant]
     Active Substance: RAMIPRIL
     Dosage: DAILY DOSE: 5/25 MG
     Route: 065
     Dates: start: 1983
  10. DTIC [Concomitant]
     Active Substance: DACARBAZINE
  11. VEMURAFENIB [Suspect]
     Active Substance: VEMURAFENIB
     Route: 048
     Dates: start: 20111220, end: 20120104
  12. DERMOXIN (GERMANY) [Concomitant]
     Dosage: TOTAL DAILY DOSE: 1 APPLICATION
     Route: 065
     Dates: start: 20111209, end: 20120105
  13. INTERFERON ALFA-2A [Concomitant]
     Active Substance: INTERFERON ALFA-2A
  14. VEMURAFENIB [Suspect]
     Active Substance: VEMURAFENIB
     Dosage: LAST DOSE PROIR TO SAE WAS ON 4/JAN/2012
     Route: 048
     Dates: start: 20111121, end: 20111219
  15. ECURAL [Concomitant]
     Active Substance: MOMETASONE
     Dosage: TOTAL DAILY DOSE: 2 APPLICATIONS
     Route: 065
     Dates: start: 20111213
  16. CLOPIDOGREL [Concomitant]
     Active Substance: CLOPIDOGREL BISULFATE
     Route: 065
     Dates: start: 200707
  17. PANTOZOL [Concomitant]
     Active Substance: PANTOPRAZOLE SODIUM
     Route: 065
     Dates: start: 20120106

REACTIONS (5)
  - Acute myocardial infarction [Not Recovered/Not Resolved]
  - Escherichia sepsis [Not Recovered/Not Resolved]
  - Multi-organ disorder [Fatal]
  - Diabetic ketoacidosis [Recovering/Resolving]
  - Pneumonia [Not Recovered/Not Resolved]

NARRATIVE: CASE EVENT DATE: 20120106
